FAERS Safety Report 15509032 (Version 1)
Quarter: 2018Q4

REPORT INFORMATION
  Report Type: Spontaneous
  Country: FI (occurrence: FI)
  Receive Date: 20181016
  Receipt Date: 20181016
  Transmission Date: 20190205
  Serious: Yes (Other)
  Sender: FDA-Public Use
  Company Number: FI-GLAXOSMITHKLINE-FI2018183936

PATIENT
  Sex: Female

DRUGS (1)
  1. FLIXONASE [Suspect]
     Active Substance: FLUTICASONE PROPIONATE
     Indication: NASAL POLYPS
     Dosage: UNK
     Route: 045
     Dates: start: 2002, end: 201807

REACTIONS (2)
  - Glaucoma [Not Recovered/Not Resolved]
  - Intraocular pressure test [Not Recovered/Not Resolved]

NARRATIVE: CASE EVENT DATE: 2015
